FAERS Safety Report 24417092 (Version 2)
Quarter: 2025Q2

REPORT INFORMATION
  Report Type: Spontaneous
  Country: US (occurrence: US)
  Receive Date: 20241009
  Receipt Date: 20250621
  Transmission Date: 20250717
  Serious: Yes (Death)
  Sender: UCB
  Company Number: US-UCBSA-2024051241

PATIENT
  Age: 75 Year
  Sex: Male

DRUGS (4)
  1. MIDAZOLAM [Suspect]
     Active Substance: MIDAZOLAM
     Indication: Sedation
  2. MIDAZOLAM [Suspect]
     Active Substance: MIDAZOLAM
     Indication: Off label use
  3. KETAMINE [Suspect]
     Active Substance: KETAMINE
     Indication: Sedation
  4. PHENYLEPHRINE [Concomitant]
     Active Substance: PHENYLEPHRINE
     Indication: Carbon dioxide decreased

REACTIONS (2)
  - Death [Fatal]
  - Off label use [Unknown]
